FAERS Safety Report 12558272 (Version 2)
Quarter: 2016Q3

REPORT INFORMATION
  Report Type: Report from Study
  Country: US (occurrence: US)
  Receive Date: 20160714
  Receipt Date: 20160725
  Transmission Date: 20161109
  Serious: Yes (Hospitalization, Other)
  Sender: FDA-Public Use
  Company Number: US-GILEAD-2016-0223525

PATIENT
  Age: 89 Year
  Sex: Female
  Weight: 61.22 kg

DRUGS (8)
  1. ASPIRIN                            /00002701/ [Concomitant]
     Active Substance: ASPIRIN
  2. CALCIUM [Concomitant]
     Active Substance: CALCIUM
  3. COZAAR [Concomitant]
     Active Substance: LOSARTAN POTASSIUM
  4. ALENDRONATE [Concomitant]
     Active Substance: ALENDRONATE SODIUM
  5. LOVASTATIN. [Concomitant]
     Active Substance: LOVASTATIN
  6. AMBRISENTAN [Suspect]
     Active Substance: AMBRISENTAN
     Indication: PULMONARY ARTERIAL HYPERTENSION
     Dosage: 10 MG, QD
     Route: 048
  7. ATENDOL [Concomitant]
     Active Substance: ATENOLOL
  8. TRAVATAN [Concomitant]
     Active Substance: TRAVOPROST

REACTIONS (3)
  - Syncope [Unknown]
  - Contusion [Unknown]
  - Eye contusion [Unknown]

NARRATIVE: CASE EVENT DATE: 20160705
